FAERS Safety Report 14612359 (Version 1)
Quarter: 2018Q1

REPORT INFORMATION
  Report Type: Spontaneous
  Country: AU (occurrence: AU)
  Receive Date: 20180308
  Receipt Date: 20180308
  Transmission Date: 20180509
  Serious: Yes (Death)
  Sender: FDA-Public Use
  Company Number: AU-009507513-1803AUS002741

PATIENT
  Age: 31 Year
  Sex: Female
  Weight: 72 kg

DRUGS (4)
  1. OXAZEPAM. [Suspect]
     Active Substance: OXAZEPAM
     Dosage: 60 MG, DAILY
  2. MIRTAZAPINE GA [Suspect]
     Active Substance: MIRTAZAPINE
     Dosage: 50 MG, DAILY
     Route: 048
  3. DIAZEPAM. [Suspect]
     Active Substance: DIAZEPAM
     Dosage: 10 MG, DAILY
  4. DESVENLAFAXINE. [Suspect]
     Active Substance: DESVENLAFAXINE

REACTIONS (2)
  - Toxicity to various agents [Fatal]
  - Accidental overdose [Fatal]

NARRATIVE: CASE EVENT DATE: 20160202
